FAERS Safety Report 4628071-8 (Version None)
Quarter: 2005Q2

REPORT INFORMATION
  Report Type: 
  Country: None (occurrence: None)
  Receive Date: 20050406
  Receipt Date: 20050325
  Transmission Date: 20051028
  Serious: Yes (Other)
  Sender: FDA-Public Use
  Company Number: US-GLAXOSMITHKLINE-A0551404A

PATIENT
  Age: 56 Year
  Sex: Female
  Weight: 90 kg

DRUGS (8)
  1. NICORETTE [Suspect]
     Route: 002
     Dates: start: 20041201
  2. TRAZODONE HCL [Concomitant]
     Indication: SLEEP DISORDER
     Route: 048
  3. LITHIUM [Concomitant]
     Route: 048
  4. TOPROL-XL [Concomitant]
     Route: 048
  5. ZYPREXA [Concomitant]
     Route: 048
  6. LORAZEPAM [Concomitant]
     Route: 048
  7. HUMULIN 70/30 [Concomitant]
     Route: 058
  8. INSULIN [Concomitant]
     Route: 058

REACTIONS (2)
  - BLOOD GLUCOSE INCREASED [None]
  - DEPENDENCE [None]
